FAERS Safety Report 13049995 (Version 1)
Quarter: 2016Q4

REPORT INFORMATION
  Report Type: Spontaneous
  Country: FR (occurrence: FR)
  Receive Date: 20161221
  Receipt Date: 20161221
  Transmission Date: 20170207
  Serious: Yes (Life-Threatening, Other)
  Sender: FDA-Public Use
  Company Number: FR-GILEAD-2016-0249573

PATIENT
  Age: 61 Year
  Sex: Male

DRUGS (14)
  1. STRIBILD [Suspect]
     Active Substance: COBICISTAT\ELVITEGRAVIR\EMTRICITABINE\TENOFOVIR DISOPROXIL FUMARATE
     Indication: HIV INFECTION
     Dosage: 1 DF, QD
     Route: 048
     Dates: start: 20160911, end: 20161020
  2. SOLU-MEDROL [Concomitant]
     Active Substance: METHYLPREDNISOLONE SODIUM SUCCINATE
  3. ISOTONIC SODIUM CHLORIDE SOLUTION [Concomitant]
     Active Substance: SODIUM CHLORIDE
  4. FLUCONAZOLE. [Concomitant]
     Active Substance: FLUCONAZOLE
  5. WELLVONE [Concomitant]
     Active Substance: ATOVAQUONE
  6. OXYGEN. [Concomitant]
     Active Substance: OXYGEN
  7. PARACETAMOL [Concomitant]
     Active Substance: ACETAMINOPHEN
  8. LOVENOX [Concomitant]
     Active Substance: ENOXAPARIN SODIUM
  9. INEXIUM                            /01479302/ [Concomitant]
     Active Substance: ESOMEPRAZOLE MAGNESIUM
  10. KCL [Concomitant]
     Active Substance: POTASSIUM CHLORIDE
  11. BACTRIM BALSAMICO [Concomitant]
  12. MAGNESIUM [Concomitant]
     Active Substance: MAGNESIUM
  13. SMOFKABIVEN [Concomitant]
     Active Substance: UNSPECIFIED INGREDIENT
  14. ONDANSETRON [Concomitant]
     Active Substance: ONDANSETRON

REACTIONS (2)
  - Immune reconstitution inflammatory syndrome [Recovered/Resolved]
  - Lung disorder [Recovered/Resolved]

NARRATIVE: CASE EVENT DATE: 20160923
